FAERS Safety Report 9844462 (Version 1)
Quarter: 2014Q1

REPORT INFORMATION
  Report Type: Report from Study
  Country: FR (occurrence: FR)
  Receive Date: 20140127
  Receipt Date: 20140127
  Transmission Date: 20141002
  Serious: Yes (Hospitalization, Other)
  Sender: FDA-Public Use
  Company Number: FR-ROCHE-1335961

PATIENT
  Age: 50 Year
  Sex: Male
  Weight: 59 kg

DRUGS (9)
  1. RIBAVIRIN [Suspect]
     Indication: HEPATITIS C
     Route: 048
     Dates: start: 20130916, end: 20131017
  2. SOFOSBUVIR [Suspect]
     Indication: HEPATITIS C
     Route: 048
     Dates: start: 20130916
  3. MYCOPHENOLATE MOFETIL [Concomitant]
     Route: 065
  4. KALETRA [Concomitant]
  5. TRUVADA [Concomitant]
  6. NEORAL [Concomitant]
     Route: 065
     Dates: start: 2006
  7. NOROXINE [Concomitant]
     Route: 065
     Dates: start: 2013
  8. DELURSAN [Concomitant]
     Route: 065
     Dates: start: 2011
  9. DACLATASVIR [Concomitant]

REACTIONS (1)
  - Hypercalcaemia [Not Recovered/Not Resolved]
